FAERS Safety Report 25720854 (Version 3)
Quarter: 2025Q3

REPORT INFORMATION
  Report Type: Report from Study
  Country: CA (occurrence: CA)
  Receive Date: 20250825
  Receipt Date: 20250923
  Transmission Date: 20251021
  Serious: Yes (Hospitalization, Other)
  Sender: CSL BEHRING
  Company Number: CA-BEH-2025209320

PATIENT
  Age: 72 Year
  Sex: Female
  Weight: 113.6 kg

DRUGS (12)
  1. HIZENTRA [Suspect]
     Active Substance: HUMAN IMMUNOGLOBULIN G
     Indication: Primary immunodeficiency syndrome
     Dosage: 20 G, QW
     Route: 058
     Dates: start: 20230619
  2. HIZENTRA [Suspect]
     Active Substance: HUMAN IMMUNOGLOBULIN G
     Dosage: 20 G, QW
     Route: 058
     Dates: start: 20230619
  3. HIZENTRA [Suspect]
     Active Substance: HUMAN IMMUNOGLOBULIN G
     Dosage: 20 G, QW
     Route: 065
  4. HIZENTRA [Suspect]
     Active Substance: HUMAN IMMUNOGLOBULIN G
     Dosage: 20 G, QW
     Route: 058
  5. HIZENTRA [Suspect]
     Active Substance: HUMAN IMMUNOGLOBULIN G
     Dosage: UNK UNK, QW
     Route: 065
  6. ALLOPURINOL [Concomitant]
     Active Substance: ALLOPURINOL
     Indication: Product used for unknown indication
     Route: 065
  7. AMLODIPINE [Concomitant]
     Active Substance: AMLODIPINE BESYLATE
     Indication: Product used for unknown indication
     Route: 065
  8. LASIX [Concomitant]
     Active Substance: FUROSEMIDE
     Indication: Product used for unknown indication
     Route: 065
  9. Pantaloc [Concomitant]
  10. BUPROPION [Concomitant]
     Active Substance: BUPROPION
  11. TELMISARTAN [Concomitant]
     Active Substance: TELMISARTAN
  12. PANTOPRAZOLE SODIUM [Concomitant]
     Active Substance: PANTOPRAZOLE SODIUM

REACTIONS (45)
  - Fall [Unknown]
  - Loss of consciousness [Unknown]
  - Arthritis [Unknown]
  - Myalgia [Unknown]
  - Arthralgia [Unknown]
  - Blister [Recovered/Resolved]
  - Blister rupture [Recovered/Resolved]
  - Blood pressure diastolic decreased [Recovered/Resolved]
  - Chest injury [Recovered/Resolved]
  - Constipation [Recovered/Resolved]
  - Diarrhoea [Recovered/Resolved]
  - Dry skin [Recovered/Resolved]
  - Fear of injection [Recovered/Resolved]
  - Frequent bowel movements [Recovered/Resolved]
  - Gastrointestinal disorder [Recovered/Resolved]
  - Incorrect dose administered [Recovered/Resolved]
  - Infusion site discharge [Recovered/Resolved]
  - Nasal congestion [Recovered/Resolved]
  - Nervousness [Recovered/Resolved]
  - Pain [Recovered/Resolved]
  - Pneumonia [Recovered/Resolved]
  - Pruritus [Recovered/Resolved]
  - Product dose omission in error [Recovered/Resolved]
  - Sleep disorder [Recovered/Resolved]
  - Vertigo [Recovered/Resolved]
  - Sinusitis [Unknown]
  - Urinary retention [Unknown]
  - Insomnia [Unknown]
  - Fall [Unknown]
  - Fatigue [Unknown]
  - Weight increased [Unknown]
  - Paranasal sinus discomfort [Unknown]
  - Sinus congestion [Unknown]
  - Contusion [Unknown]
  - Asthenia [Recovering/Resolving]
  - Malaise [Recovering/Resolving]
  - Lethargy [Recovering/Resolving]
  - Arthralgia [Unknown]
  - Lung disorder [Unknown]
  - Pain in extremity [Unknown]
  - Malaise [Unknown]
  - Sinusitis [Unknown]
  - Cough [Unknown]
  - Product dose omission issue [Unknown]
  - Feeling of body temperature change [Unknown]

NARRATIVE: CASE EVENT DATE: 20250601
